FAERS Safety Report 5517576-3 (Version None)
Quarter: 2007Q4

REPORT INFORMATION
  Report Type: 
  Country: None (occurrence: None)
  Receive Date: 20071114
  Receipt Date: 20071018
  Transmission Date: 20080405
  Serious: Yes (Death, Other)
  Sender: FDA-Public Use
  Company Number: ES-PFIZER INC-2007088074

PATIENT
  Sex: Male

DRUGS (7)
  1. DOXORUBICIN HCL [Suspect]
     Indication: ADRENAL GLAND CANCER METASTATIC
  2. ETOPOSIDE [Suspect]
     Indication: ADRENAL GLAND CANCER METASTATIC
     Dosage: DAILY DOSE:170MG
  3. LYSODREN [Suspect]
     Indication: ADRENAL GLAND CANCER METASTATIC
     Dosage: TEXT:2-9 G/DAY
     Route: 048
     Dates: start: 20070419, end: 20070826
  4. ASTONIN-H [Concomitant]
     Dates: start: 20070618, end: 20070826
  5. HYDROCORTISONE [Concomitant]
     Dates: start: 20070618, end: 20070826
  6. REXER [Concomitant]
     Dates: start: 20070618, end: 20070826
  7. OMEPRAZOLE [Concomitant]
     Dates: start: 20070618, end: 20070826

REACTIONS (4)
  - CEREBRAL THROMBOSIS [None]
  - DEATH [None]
  - DRUG LEVEL ABOVE THERAPEUTIC [None]
  - VOMITING [None]
